FAERS Safety Report 9201315 (Version 2)
Quarter: 2013Q2

REPORT INFORMATION
  Report Type: Spontaneous
  Country: US (occurrence: None)
  Receive Date: 20130325
  Receipt Date: 20130403
  Transmission Date: 20140414
  Serious: Yes (Other)
  Sender: FDA-Public Use
  Company Number: 2013PROUSA02648

PATIENT
  Age: 73 Year
  Sex: Male
  Weight: 102 kg

DRUGS (13)
  1. PROVENGE [Suspect]
     Indication: PROSTATE CANCER METASTATIC
     Dosage: 250 ML, SINGLE, INTRAVENOUS
     Route: 042
     Dates: start: 20130301, end: 20130301
  2. ALDACTONE (SPIRONOLACTONE) [Concomitant]
  3. COUMADIN (WARFARIN SODIUM) [Concomitant]
  4. ESCITALOPRAM [Concomitant]
  5. REMERON (MIRTAZAPINE) [Concomitant]
  6. ANTIVERT (MECLOZINE HYDROCHLORIDE) [Concomitant]
  7. CELEXA (CITALOPRAM HYDROBROMIDE) [Concomitant]
  8. DILTIAZEM (DILTIAZEM HYDROCHLORIDE) [Concomitant]
  9. FEXOFENADINE HYDROCHLORIDE [Concomitant]
  10. LIPITOR (ATORVASTATIN CALCIUM) [Concomitant]
  11. ACETAMINOPHEN (PARACETAMOL) [Concomitant]
  12. DIPHENHYDRAMINE HYDROCHLORIDE [Concomitant]
  13. SODIUM CHLORIDE [Concomitant]

REACTIONS (5)
  - Cardiac failure congestive [None]
  - Pallor [None]
  - Urinary tract infection [None]
  - Cirrhosis alcoholic [None]
  - Left ventricular hypertrophy [None]
